FAERS Safety Report 5426237-0 (Version None)
Quarter: 2007Q3

REPORT INFORMATION
  Report Type: 
  Country: None (occurrence: None)
  Receive Date: 20070827
  Receipt Date: 20070817
  Transmission Date: 20080115
  Serious: Yes (Disabling)
  Sender: FDA-Public Use
  Company Number: GB-AMGEN-US239695

PATIENT
  Sex: Female
  Weight: 59.7 kg

DRUGS (8)
  1. ENBREL [Suspect]
     Indication: DRUG USE FOR UNKNOWN INDICATION
     Dosage: 50 MG (PRE-FILLED SYRINGE) ONCE WEEKLY
     Route: 058
     Dates: start: 20070704
  2. FOLIC ACID [Concomitant]
     Dosage: UNKNOWN
     Dates: start: 20010101
  3. ERGOCALCIFEROL [Concomitant]
     Dosage: UNKNOWN
  4. LANSOPRAZOLE [Concomitant]
     Dosage: UNKNOWN
  5. FERROUS SULFATE TAB [Concomitant]
     Dosage: UNKNOWN
  6. CALCIUM [Concomitant]
     Dosage: UNKNOWN
  7. METHOTREXATE [Concomitant]
     Dosage: 20 MG WEEKLY
     Route: 048
     Dates: start: 20010101
  8. ARTHROTEC [Concomitant]
     Dosage: 75 (UNKNOWN UNIT) TWICE DAILY

REACTIONS (1)
  - INJECTION SITE PAIN [None]
